FAERS Safety Report 10991440 (Version 2)
Quarter: 2015Q2

REPORT INFORMATION
  Report Type: Spontaneous
  Country: US (occurrence: US)
  Receive Date: 20150406
  Receipt Date: 20150408
  Transmission Date: 20150821
  Serious: Yes (Other)
  Sender: FDA-Public Use
  Company Number: US-BRISTOL-MYERS SQUIBB COMPANY-BMS-2015-020207

PATIENT
  Sex: Female

DRUGS (1)
  1. SPRYCEL [Suspect]
     Active Substance: DASATINIB
     Indication: BREAST CANCER FEMALE
     Dosage: 70 MG, QD
     Route: 048
     Dates: start: 20150224

REACTIONS (2)
  - Pleural effusion [Unknown]
  - Off label use [Unknown]
